FAERS Safety Report 8560405-4 (Version None)
Quarter: 2012Q3

REPORT INFORMATION
  Report Type: 
  Country: None (occurrence: None)
  Receive Date: 20120802
  Receipt Date: 20120725
  Transmission Date: 20120928
  Serious: Yes (Other)
  Sender: FDA-Public Use
  Company Number: CH-JNJFOC-20120700512

PATIENT
  Sex: Female

DRUGS (11)
  1. XARELTO [Suspect]
     Indication: KNEE ARTHROPLASTY
     Dosage: DURATION OF DRUG ADMINISTRATION=21 DAYS
     Route: 048
  2. XARELTO [Suspect]
     Route: 048
     Dates: start: 20120620
  3. TRIMIPRAMINE MALEATE [Concomitant]
  4. XARELTO [Suspect]
     Route: 048
     Dates: start: 20120620
  5. TORSEMIDE [Concomitant]
  6. XARELTO [Suspect]
     Dosage: DURATION OF DRUG ADMMINISTRATION=63 DAYS
     Route: 048
  7. TARGIN [Concomitant]
  8. XARELTO [Suspect]
     Indication: THROMBOSIS PROPHYLAXIS
     Dosage: DURATION OF DRUG ADMINISTRATION=21 DAYS
     Route: 048
  9. ACETAMINOPHEN [Concomitant]
  10. XARELTO [Suspect]
     Dosage: DURATION OF DRUG ADMMINISTRATION=63 DAYS
     Route: 048
  11. ZOLPIDEM TARTRATE [Concomitant]

REACTIONS (1)
  - DEEP VEIN THROMBOSIS [None]
